FAERS Safety Report 8563581-2 (Version None)
Quarter: 2012Q3

REPORT INFORMATION
  Report Type: 
  Country: None (occurrence: None)
  Receive Date: 20120803
  Receipt Date: 20120730
  Transmission Date: 20120928
  Serious: No
  Sender: FDA-Public Use
  Company Number: US-009507513-1208USA000009

PATIENT

DRUGS (2)
  1. RIBASPHERE [Suspect]
  2. PEG-INTRON [Suspect]
     Indication: HEPATITIS C
     Dosage: 150 MICROGRAM, QW
     Dates: start: 20120411

REACTIONS (1)
  - WHITE BLOOD CELL COUNT DECREASED [None]
